FAERS Safety Report 8229184-4 (Version None)
Quarter: 2012Q1

REPORT INFORMATION
  Report Type: 
  Country: None (occurrence: None)
  Receive Date: 20120322
  Receipt Date: 20120316
  Transmission Date: 20120608
  Serious: Yes (Hospitalization)
  Sender: FDA-Public Use
  Company Number: BR-PFIZER INC-2012069984

PATIENT
  Age: 35 Year
  Sex: Male
  Weight: 77 kg

DRUGS (2)
  1. GENOTROPIN [Suspect]
     Indication: OBESITY
     Dosage: UNK
     Route: 058
     Dates: start: 20120201
  2. GENOTROPIN [Suspect]
     Indication: OFF LABEL USE
     Dosage: DAILY
     Route: 058
     Dates: start: 20111001

REACTIONS (1)
  - NEPHROLITHIASIS [None]
